FAERS Safety Report 5792303-3 (Version None)
Quarter: 2008Q2

REPORT INFORMATION
  Report Type: 
  Country: None (occurrence: None)
  Receive Date: 20080626
  Receipt Date: 20080403
  Transmission Date: 20081010
  Serious: No
  Sender: FDA-Public Use
  Company Number: US-ASTRAZENECA-2008UW06786

PATIENT
  Age: 45 Year
  Sex: Male
  Weight: 108.9 kg

DRUGS (6)
  1. PULMICORT FLEXHALER [Suspect]
     Indication: DYSPNOEA
     Dosage: 180 UG ONE INHALATION BID
     Route: 055
  2. PULMICORT FLEXHALER [Suspect]
     Indication: BRONCHITIS
     Dosage: 180 UG ONE INHALATION BID
     Route: 055
  3. NEXIUM [Concomitant]
  4. ROBAXIN [Concomitant]
  5. MOBIC [Concomitant]
  6. MULTI-VITAMIN [Concomitant]

REACTIONS (4)
  - ABDOMINAL DISTENSION [None]
  - CONSTIPATION [None]
  - FLATULENCE [None]
  - STOMACH DISCOMFORT [None]
